FAERS Safety Report 12354065 (Version 10)
Quarter: 2017Q2

REPORT INFORMATION
  Report Type: Spontaneous
  Country: US (occurrence: US)
  Receive Date: 20160511
  Receipt Date: 20170619
  Transmission Date: 20170830
  Serious: Yes (Congenital Anomaly, Other)
  Sender: FDA-Public Use
  Company Number: PHEH2016US011579

PATIENT
  Sex: Male

DRUGS (1)
  1. ZOFRAN ODT [Suspect]
     Active Substance: ONDANSETRON HYDROCHLORIDE
     Indication: FOETAL EXPOSURE DURING PREGNANCY
     Dosage: MOTHER^S DOSE: 8 MG, UNK
     Route: 064

REACTIONS (21)
  - Deformity [Unknown]
  - Insomnia [Unknown]
  - Anxiety [Unknown]
  - Developmental delay [Unknown]
  - Pain [Unknown]
  - Emotional distress [Unknown]
  - Selective eating disorder [Unknown]
  - Deafness [Unknown]
  - Injury [Unknown]
  - Congenital anomaly [Unknown]
  - Cleft palate [Unknown]
  - Anhedonia [Unknown]
  - Eczema [Unknown]
  - Self esteem decreased [Unknown]
  - Decreased appetite [Unknown]
  - Attention deficit/hyperactivity disorder [Unknown]
  - Foetal exposure during pregnancy [Unknown]
  - Joint dislocation [Unknown]
  - Dermoid cyst [Unknown]
  - Speech disorder [Unknown]
  - Dyspnoea [Unknown]
